FAERS Safety Report 17400357 (Version 1)
Quarter: 2020Q1

REPORT INFORMATION
  Report Type: Spontaneous
  Country: US (occurrence: US)
  Receive Date: 20200211
  Receipt Date: 20200211
  Transmission Date: 20200409
  Serious: Yes (Hospitalization, Other)
  Sender: FDA-Public Use
  Company Number: US-ALKEM LABORATORIES LIMITED-US-ALKEM-2020-00232

PATIENT
  Age: 51 Year
  Sex: Female

DRUGS (1)
  1. METHADONE HYDROCHLORIDE. [Suspect]
     Active Substance: METHADONE HYDROCHLORIDE
     Indication: FIBROMYALGIA
     Dosage: UNK
     Route: 048

REACTIONS (6)
  - Loss of consciousness [Recovered/Resolved]
  - Leukoencephalopathy [Unknown]
  - Cough [Unknown]
  - Asthenia [Unknown]
  - Myalgia [Unknown]
  - Overdose [Unknown]
